FAERS Safety Report 8144146-3 (Version None)
Quarter: 2012Q1

REPORT INFORMATION
  Report Type: 
  Country: None (occurrence: None)
  Receive Date: 20120217
  Receipt Date: 20120214
  Transmission Date: 20120608
  Serious: No
  Sender: FDA-Public Use
  Company Number: US-PFIZER INC-2011055197

PATIENT
  Sex: Female

DRUGS (3)
  1. LYRICA [Suspect]
     Indication: NEUROPATHY PERIPHERAL
     Dosage: 225 MG, 3X/DAY
  2. LYRICA [Suspect]
     Dosage: 300 MG, 4X/DAY
  3. LYRICA [Suspect]
     Indication: NEURALGIA
     Dosage: 300 MG, 4X/DAY

REACTIONS (5)
  - DRUG INEFFECTIVE [None]
  - SWELLING FACE [None]
  - PAIN IN EXTREMITY [None]
  - JOINT SWELLING [None]
  - DEPRESSION [None]
